FAERS Safety Report 12088834 (Version 1)
Quarter: 2016Q1

REPORT INFORMATION
  Report Type: Other
  Country: GB (occurrence: GB)
  Receive Date: 20160218
  Receipt Date: 20160218
  Transmission Date: 20160526
  Serious: Yes (Other)
  Sender: FDA-Public Use
  Company Number: GB-MYLANLABS-2016M1005469

PATIENT

DRUGS (10)
  1. PARACETAMOL [Concomitant]
     Active Substance: ACETAMINOPHEN
     Dosage: UNK (TAKE 1 OR 2 4 TIMES A DAY)
     Dates: start: 20150512
  2. MOVELAT                            /00479601/ [Concomitant]
     Dosage: 1 DF, TID
     Dates: start: 20150618
  3. PIROXICAM. [Concomitant]
     Active Substance: PIROXICAM
     Dosage: UNK (APPLY AS DIRECTED)
     Dates: start: 20151204, end: 20151205
  4. MIRTAZAPINE. [Concomitant]
     Active Substance: MIRTAZAPINE
     Dosage: 1 DF, QD (AT NIGHT)
     Dates: start: 20160108
  5. CLENIL MODULITE [Concomitant]
     Active Substance: BECLOMETHASONE DIPROPIONATE
     Dosage: 2 DF, BID
     Route: 055
     Dates: start: 20140408
  6. SALBUTAMOL [Concomitant]
     Active Substance: ALBUTEROL
     Dosage: 2 DF, UNK
     Route: 055
     Dates: start: 20140408
  7. OTOMIZE [Concomitant]
     Active Substance: DEXAMETHASONE\NEOMYCIN SULFATE
     Dosage: UNK (USE AS DIRECTED)
     Dates: start: 20151223, end: 20151228
  8. DOXYCYCLINE. [Suspect]
     Active Substance: DOXYCYCLINE
     Dosage: UNK
     Dates: start: 20160127
  9. IBUPROFEN. [Concomitant]
     Active Substance: IBUPROFEN
     Dosage: 1 DF, TID
     Dates: start: 20151127, end: 20151207
  10. OMEPRAZOLE. [Concomitant]
     Active Substance: OMEPRAZOLE
     Dosage: 1 DF, QD
     Dates: start: 20150126

REACTIONS (2)
  - Malaise [Recovered/Resolved]
  - Pharyngeal oedema [Recovered/Resolved]

NARRATIVE: CASE EVENT DATE: 20160127
